FAERS Safety Report 6192027-7 (Version None)
Quarter: 2009Q2

REPORT INFORMATION
  Report Type: 
  Country: None (occurrence: None)
  Receive Date: 20090515
  Receipt Date: 20090504
  Transmission Date: 20091009
  Serious: Yes (Death)
  Sender: FDA-Public Use
  Company Number: SG-MERCK-0905SGP00002

PATIENT

DRUGS (1)
  1. INVANZ [Suspect]
     Indication: BACTERAEMIA
     Route: 065

REACTIONS (1)
  - DEATH [None]
